FAERS Safety Report 3730658 (Version 4)
Quarter: 2023Q1

REPORT INFORMATION
  Report Type: Spontaneous
  Country: US (occurrence: US)
  Receive Date: 20011107
  Receipt Date: 20230210
  Transmission Date: 20230418
  Serious: Yes (Death, Life-Threatening, Hospitalization, Other)
  Sender: FDA-Public Use
  Company Number: None

PATIENT
  Age: 51 Year
  Sex: Female

DRUGS (2)
  1. GLEEVEC [Suspect]
     Active Substance: IMATINIB MESYLATE
     Indication: Myelofibrosis
     Dosage: 400 MG, QD
     Route: 048
     Dates: start: 20010612, end: 20010702
  2. GLEEVEC [Suspect]
     Active Substance: IMATINIB MESYLATE
     Dosage: 200 MG, QD (DECREASED)
     Route: 048
     Dates: start: 20010717, end: 20010810

REACTIONS (10)
  - Pulmonary embolism [Fatal]
  - Cardio-respiratory arrest [Fatal]
  - Disease progression [Fatal]
  - Spontaneous splenic rupture [Unknown]
  - Platelet count increased [Unknown]
  - Pain [Unknown]
  - Thrombosis [Unknown]
  - Peripheral swelling [Unknown]
  - Thrombocytosis [Unknown]
  - Product use in unapproved indication [Unknown]

NARRATIVE: CASE EVENT DATE: 20011022
